FAERS Safety Report 12662826 (Version 1)
Quarter: 2016Q3

REPORT INFORMATION
  Report Type: Spontaneous
  Country: US (occurrence: None)
  Receive Date: 20160817
  Receipt Date: 20160817
  Transmission Date: 20161109
  Serious: No
  Sender: FDA-Public Use
  Company Number: None

PATIENT
  Age: 56 Year
  Sex: Female

DRUGS (1)
  1. SUTENT [Suspect]
     Active Substance: SUNITINIB MALATE

REACTIONS (5)
  - Dyspnoea [None]
  - Fatigue [None]
  - Dizziness [None]
  - Therapy cessation [None]
  - Disorientation [None]

NARRATIVE: CASE EVENT DATE: 20160816
